FAERS Safety Report 9027943 (Version 1)
Quarter: 2013Q1

REPORT INFORMATION
  Report Type: Spontaneous
  Country: US (occurrence: None)
  Receive Date: 20130114
  Receipt Date: 20130114
  Transmission Date: 20140127
  Serious: Yes (Disabling)
  Sender: FDA-Public Use
  Company Number: None

PATIENT
  Age: 27 Year
  Sex: Male
  Weight: 99.79 kg

DRUGS (1)
  1. CIPROFLAXIN [Suspect]
     Indication: DIVERTICULITIS
     Dosage: CIPROFLOXACIN (CIPRO) 500 MG 2X/ DAY - 10 DAYS ORAL
     Route: 048
     Dates: start: 20120427

REACTIONS (28)
  - Dysphagia [None]
  - Nausea [None]
  - Vomiting [None]
  - Dizziness [None]
  - Tinnitus [None]
  - Hyperacusis [None]
  - Depression [None]
  - Abnormal dreams [None]
  - Amnesia [None]
  - Suicidal ideation [None]
  - Depressed level of consciousness [None]
  - Panic reaction [None]
  - Anxiety [None]
  - Headache [None]
  - Respiratory disorder [None]
  - Arrhythmia [None]
  - Hypertension [None]
  - Syncope [None]
  - Vision blurred [None]
  - Diplopia [None]
  - Bladder disorder [None]
  - Balance disorder [None]
  - Muscle spasms [None]
  - Muscle twitching [None]
  - Pain in extremity [None]
  - Pain in extremity [None]
  - Pain in extremity [None]
  - Local swelling [None]
